FAERS Safety Report 10232571 (Version 2)
Quarter: 2014Q3

REPORT INFORMATION
  Report Type: Spontaneous
  Country: US (occurrence: US)
  Receive Date: 20140612
  Receipt Date: 20140918
  Transmission Date: 20150326
  Serious: No
  Sender: FDA-Public Use
  Company Number: US-TEVA-483929USA

PATIENT
  Sex: Female

DRUGS (1)
  1. ESCITALOPRAM [Suspect]
     Active Substance: ESCITALOPRAM OXALATE
     Indication: ANXIETY
     Dates: start: 2014

REACTIONS (10)
  - Hypersensitivity [Unknown]
  - Drug ineffective [Unknown]
  - Therapeutic response changed [Unknown]
  - Irritability [Unknown]
  - Anxiety [Unknown]
  - Thinking abnormal [Unknown]
  - Insomnia [Unknown]
  - Depressed mood [Unknown]
  - Respiratory disorder [Unknown]
  - Back pain [Unknown]

NARRATIVE: CASE EVENT DATE: 2014
